FAERS Safety Report 14251756 (Version 2)
Quarter: 2018Q1

REPORT INFORMATION
  Report Type: Spontaneous
  Country: US (occurrence: US)
  Receive Date: 20171205
  Receipt Date: 20180119
  Transmission Date: 20180508
  Serious: Yes (Hospitalization)
  Sender: FDA-Public Use
  Company Number: US-VIFOR (INTERNATIONAL) INC.-VIT-2017-13044

PATIENT
  Age: 60 Year
  Sex: Female
  Weight: 209.57 kg

DRUGS (34)
  1. CLAVULANATE POTASSIUM~~AMOXICILLIN TRIHYDRATE [Concomitant]
  2. PHENYTOIN SODIUM. [Concomitant]
     Active Substance: PHENYTOIN SODIUM
  3. ROZEREM [Concomitant]
     Active Substance: RAMELTEON
  4. PROMETHAZINE HYDROCHLORIDE. [Concomitant]
     Active Substance: PROMETHAZINE HYDROCHLORIDE
  5. HUMALOG [Concomitant]
     Active Substance: INSULIN LISPRO
  6. GABAPENTINO [Concomitant]
  7. HYDRALAZINE HYDROCHLORIDE. [Concomitant]
     Active Substance: HYDRALAZINE HYDROCHLORIDE
  8. KEPPRA [Concomitant]
     Active Substance: LEVETIRACETAM
  9. IRON [Concomitant]
     Active Substance: IRON
     Indication: ANAEMIA
  10. OMEPRAZOLE. [Concomitant]
     Active Substance: OMEPRAZOLE
  11. LANTUS [Concomitant]
     Active Substance: INSULIN GLARGINE
  12. DOXYCYCLINE HYCLATE. [Concomitant]
     Active Substance: DOXYCYCLINE HYCLATE
  13. VERAPAMIL HYDROCHLORIDE. [Concomitant]
     Active Substance: VERAPAMIL HYDROCHLORIDE
  14. ISOSORBIDE MONONITRATE. [Concomitant]
     Active Substance: ISOSORBIDE MONONITRATE
  15. SERTRALINE HYDROCHLORIDE. [Concomitant]
     Active Substance: SERTRALINE HYDROCHLORIDE
  16. DILANTIN [Concomitant]
     Active Substance: PHENYTOIN
  17. ERGOCALCIFEROL. [Concomitant]
     Active Substance: ERGOCALCIFEROL
  18. PROTONIX [Concomitant]
     Active Substance: PANTOPRAZOLE SODIUM
  19. NYSTATIN. [Concomitant]
     Active Substance: NYSTATIN
  20. ACETYLSALICYLIC ACID [Concomitant]
     Active Substance: ASPIRIN
  21. FUROSEMIDE. [Concomitant]
     Active Substance: FUROSEMIDE
  22. SINGULAIR [Concomitant]
     Active Substance: MONTELUKAST SODIUM
  23. SODIUM BICARBONATE. [Concomitant]
     Active Substance: SODIUM BICARBONATE
  24. VIMPAT [Concomitant]
     Active Substance: LACOSAMIDE
  25. PARACETAMOL~~HYDROCODONE BITARTRATE [Concomitant]
  26. NITRO-DUR [Concomitant]
     Active Substance: NITROGLYCERIN
  27. BRE ELLIPTA [Concomitant]
  28. VELTASSA [Suspect]
     Active Substance: PATIROMER
     Indication: HYPERKALAEMIA
     Route: 048
     Dates: start: 20160506
  29. PLAVIX [Concomitant]
     Active Substance: CLOPIDOGREL BISULFATE
  30. ALLOPURINOL. [Concomitant]
     Active Substance: ALLOPURINOL
  31. IPRATROPIUM BROMIDE. [Concomitant]
     Active Substance: IPRATROPIUM BROMIDE
  32. LASIX [Concomitant]
     Active Substance: FUROSEMIDE
  33. FOLIC ACID. [Concomitant]
     Active Substance: FOLIC ACID
  34. COREG [Concomitant]
     Active Substance: CARVEDILOL

REACTIONS (3)
  - Device malfunction [Recovered/Resolved]
  - Palpitations [Recovered/Resolved]
  - Chest pain [Recovered/Resolved]

NARRATIVE: CASE EVENT DATE: 20171116
